FAERS Safety Report 8441527-5 (Version None)
Quarter: 2012Q2

REPORT INFORMATION
  Report Type: 
  Country: None (occurrence: None)
  Receive Date: 20120615
  Receipt Date: 20110927
  Transmission Date: 20120825
  Serious: No
  Sender: FDA-Public Use
  Company Number: US-NOVEN-11US003311

PATIENT
  Age: 10 Year
  Sex: Female

DRUGS (2)
  1. DAYTRANA [Suspect]
     Dosage: 20 MG, QD
     Route: 062
     Dates: start: 20110705, end: 20110810
  2. DAYTRANA [Suspect]
     Indication: PRODUCT USED FOR UNKNOWN INDICATION
     Dosage: 30 MG, QD, 9 HOURS
     Route: 062
     Dates: start: 20110811, end: 20110822

REACTIONS (1)
  - URTICARIA [None]
